FAERS Safety Report 7733678-5 (Version None)
Quarter: 2011Q3

REPORT INFORMATION
  Report Type: 
  Country: None (occurrence: None)
  Receive Date: 20110907
  Receipt Date: 20110901
  Transmission Date: 20111222
  Serious: Yes (Hospitalization, Other)
  Sender: FDA-Public Use
  Company Number: IT-BRISTOL-MYERS SQUIBB COMPANY-15976939

PATIENT
  Age: 80 Year
  Sex: Female

DRUGS (6)
  1. COUMADIN [Suspect]
     Indication: ATRIAL FIBRILLATION
     Dosage: 1DF= 1 POSOLOGIC UNIT.
     Dates: start: 20110101, end: 20110706
  2. SIMVASTATIN [Concomitant]
  3. LEVOTHYROXINE SODIUM [Concomitant]
     Dosage: TAB SAT THE DOSAGE OF 1 UNIT.
  4. FORMOTEROL FUMARATE [Concomitant]
     Dosage: 4 DOSAGE FORM= 4 UNITS
     Route: 055
  5. OLMESARTAN MEDOXOMIL [Concomitant]
     Dosage: 1 DOSAGE FORM=1 UNIT
  6. ISOPTIN [Concomitant]
     Dosage: TABS AT THE DOSAGE IF 4 UNITS

REACTIONS (4)
  - ANAEMIA [None]
  - INTERNATIONAL NORMALISED RATIO INCREASED [None]
  - INTESTINAL HAEMORRHAGE [None]
  - COLONIC POLYP [None]
